FAERS Safety Report 8391398-0 (Version None)
Quarter: 2012Q2

REPORT INFORMATION
  Report Type: 
  Country: None (occurrence: None)
  Receive Date: 20120523
  Receipt Date: 20120516
  Transmission Date: 20120825
  Serious: Yes (Other)
  Sender: FDA-Public Use
  Company Number: 2012SP020784

PATIENT
  Age: 51 Year
  Sex: Male
  Weight: 90.6 kg

DRUGS (16)
  1. PLACEBO [Suspect]
     Indication: HEPATITIS C
     Dosage: 1 DF;BID;PO
     Route: 048
     Dates: start: 20111229, end: 20120118
  2. METOPROLOL TARTRATE [Concomitant]
  3. CELEXA [Concomitant]
  4. ASPIRIN [Concomitant]
  5. TYLENOL (CAPLET) [Concomitant]
  6. RIBAVIRIN [Suspect]
     Indication: HEPATITIS C
     Dosage: 600 MG;BID;PO, 600 MG;BID;PO
     Route: 048
     Dates: start: 20110119, end: 20120313
  7. RIBAVIRIN [Suspect]
     Indication: HEPATITIS C
     Dosage: 600 MG;BID;PO, 600 MG;BID;PO
     Route: 048
     Dates: start: 20111229, end: 20120118
  8. GS-5885 [Suspect]
     Indication: HEPATITIS C
     Dosage: 3 DF;QD;PO, 3 DF;QD;PO
     Route: 048
     Dates: start: 20111229, end: 20120118
  9. GS-5885 [Suspect]
     Indication: HEPATITIS C
     Dosage: 3 DF;QD;PO, 3 DF;QD;PO
     Route: 048
     Dates: start: 20120119, end: 20120313
  10. GS-9451 [Suspect]
     Indication: HEPATITIS C
     Dosage: 2 DF;QD;PO, 2 DF;QD;PO
     Route: 048
     Dates: start: 20120119, end: 20120313
  11. GS-9451 [Suspect]
     Indication: HEPATITIS C
     Dosage: 2 DF;QD;PO, 2 DF;QD;PO
     Route: 048
     Dates: start: 20111229, end: 20120118
  12. SULINDAC [Concomitant]
  13. RANITIDINE [Concomitant]
  14. ZITHROMAX [Concomitant]
  15. CODEINE [Concomitant]
  16. PEGINTERFERON ALFA-2A [Suspect]
     Indication: HEPATITIS C
     Dosage: 180 MCG;QW;SC
     Route: 058
     Dates: start: 20120119, end: 20120309

REACTIONS (22)
  - JOINT EFFUSION [None]
  - STAPHYLOCOCCAL INFECTION [None]
  - PARAKERATOSIS [None]
  - NEPHROLITHIASIS [None]
  - NEUROPATHY PERIPHERAL [None]
  - DERMATITIS ATOPIC [None]
  - PERONEAL NERVE PALSY [None]
  - ORAL DISORDER [None]
  - BACK PAIN [None]
  - DERMATITIS [None]
  - PARAESTHESIA [None]
  - ERYTHEMA MULTIFORME [None]
  - DRUG HYPERSENSITIVITY [None]
  - ACUTE ABDOMEN [None]
  - FLANK PAIN [None]
  - RENAL PAIN [None]
  - SKIN LESION [None]
  - MOTOR DYSFUNCTION [None]
  - POLYNEUROPATHY [None]
  - DEMYELINATION [None]
  - INFLAMMATION [None]
  - FALL [None]
